FAERS Safety Report 22009810 (Version 2)
Quarter: 2023Q1

REPORT INFORMATION
  Report Type: Report from Study
  Country: US (occurrence: US)
  Receive Date: 20230220
  Receipt Date: 20230310
  Transmission Date: 20230418
  Serious: Yes (Other)
  Sender: FDA-Public Use
  Company Number: US-BEH-2023155365

PATIENT
  Age: 62 Year
  Sex: Female
  Weight: 99.79 kg

DRUGS (1)
  1. HIZENTRA [Suspect]
     Active Substance: HUMAN IMMUNOGLOBULIN G
     Indication: Primary immunodeficiency syndrome
     Dosage: 10 GRAM, QW
     Route: 058
     Dates: start: 20210614

REACTIONS (6)
  - Arrhythmia [Unknown]
  - Fatigue [Unknown]
  - Cardiac flutter [Unknown]
  - Ventricular extrasystoles [Unknown]
  - Stress [Unknown]
  - Palpitations [Unknown]

NARRATIVE: CASE EVENT DATE: 20230206
